FAERS Safety Report 15531685 (Version 1)
Quarter: 2018Q4

REPORT INFORMATION
  Report Type: Spontaneous
  Country: US (occurrence: US)
  Receive Date: 20181019
  Receipt Date: 20181019
  Transmission Date: 20190205
  Serious: No
  Sender: FDA-Public Use
  Company Number: US-PFIZER INC-2018418575

PATIENT

DRUGS (2)
  1. ADVIL LIQUI-GELS [Suspect]
     Active Substance: IBUPROFEN
     Dosage: UNK
  2. ADVIL [Interacting]
     Active Substance: IBUPROFEN
     Dosage: UNK

REACTIONS (1)
  - Drug interaction [Unknown]
